FAERS Safety Report 20383440 (Version 1)
Quarter: 2022Q1

REPORT INFORMATION
  Report Type: Report from Study
  Country: JP (occurrence: JP)
  Receive Date: 20220127
  Receipt Date: 20220127
  Transmission Date: 20220423
  Serious: Yes (Hospitalization)
  Sender: FDA-Public Use
  Company Number: JP-JNJFOC-A-CH2017-165036

PATIENT
  Age: 75 Year
  Sex: Female
  Weight: 69 kg

DRUGS (31)
  1. UPTRAVI [Suspect]
     Active Substance: SELEXIPAG
     Indication: Portopulmonary hypertension
     Dosage: 0.2 MG, BID
     Route: 048
     Dates: start: 20170503, end: 20170508
  2. UPTRAVI [Suspect]
     Active Substance: SELEXIPAG
     Dosage: 0.4 MG, BID
     Route: 048
     Dates: start: 20170509, end: 20170729
  3. UPTRAVI [Suspect]
     Active Substance: SELEXIPAG
     Dosage: 0.6 MG, BID
     Route: 048
     Dates: start: 20170730, end: 20170801
  4. UPTRAVI [Suspect]
     Active Substance: SELEXIPAG
     Dosage: 0.8 MG, BID
     Route: 048
     Dates: start: 20170802
  5. UPTRAVI [Suspect]
     Active Substance: SELEXIPAG
     Route: 048
  6. UPTRAVI [Suspect]
     Active Substance: SELEXIPAG
     Route: 048
     Dates: start: 20170503
  7. OPSUMIT [Suspect]
     Active Substance: MACITENTAN
     Indication: Portopulmonary hypertension
     Dosage: 10 MG, QD
     Route: 048
     Dates: start: 20170428, end: 20191108
  8. FUROSEMIDE [Concomitant]
     Active Substance: FUROSEMIDE
     Indication: Right ventricular failure
     Dosage: 40 MG, UNK
     Route: 048
  9. FUROSEMIDE [Concomitant]
     Active Substance: FUROSEMIDE
     Indication: Cardiac failure
  10. ADEMPAS [Concomitant]
     Active Substance: RIOCIGUAT
     Indication: Pulmonary arterial hypertension
     Dosage: 7.5 MG, UNK
     Route: 048
     Dates: start: 20170820
  11. ADEMPAS [Concomitant]
     Active Substance: RIOCIGUAT
     Indication: Portopulmonary hypertension
     Route: 048
     Dates: start: 20170720
  12. IPRAGLIFLOZIN L-PROLINE [Concomitant]
     Active Substance: IPRAGLIFLOZIN L-PROLINE
     Indication: Diabetes mellitus
     Dosage: 50 MG, UNK
     Route: 048
     Dates: start: 20170421, end: 2018
  13. IPRAGLIFLOZIN L-PROLINE [Concomitant]
     Active Substance: IPRAGLIFLOZIN L-PROLINE
     Indication: Glycosuria
  14. URSODIOL [Concomitant]
     Active Substance: URSODIOL
     Indication: Cholelithiasis
     Dosage: 600 MG, UNK
     Route: 048
  15. URSODIOL [Concomitant]
     Active Substance: URSODIOL
     Route: 048
  16. POTASSIUM ASPARTATE [Concomitant]
     Active Substance: POTASSIUM ASPARTATE
     Indication: Hypokalaemia
     Dosage: 900 MG, UNK
     Route: 048
  17. POTASSIUM ASPARTATE [Concomitant]
     Active Substance: POTASSIUM ASPARTATE
     Route: 048
  18. POTASSIUM ASPARTATE [Concomitant]
     Active Substance: POTASSIUM ASPARTATE
     Route: 048
  19. SPIRONOLACTONE [Concomitant]
     Active Substance: SPIRONOLACTONE
     Indication: Cardiac failure
     Dosage: 50 MG, UNK
     Route: 048
     Dates: start: 20170428
  20. SPIRONOLACTONE [Concomitant]
     Active Substance: SPIRONOLACTONE
     Indication: Right ventricular failure
     Route: 048
     Dates: start: 20170428
  21. LANSOPRAZOLE [Concomitant]
     Active Substance: LANSOPRAZOLE
     Indication: Gastrooesophageal reflux disease
     Dosage: 15 MG, UNK
     Route: 048
  22. VILDAGLIPTIN [Concomitant]
     Active Substance: VILDAGLIPTIN
     Indication: Diabetes mellitus
     Dosage: 100 MG, UNK
     Route: 048
  23. VILDAGLIPTIN [Concomitant]
     Active Substance: VILDAGLIPTIN
     Indication: Glycosuria
     Route: 048
     Dates: start: 20170421
  24. SAMSCA [Concomitant]
     Active Substance: TOLVAPTAN
     Indication: Right ventricular failure
     Route: 048
     Dates: start: 20170428, end: 20170508
  25. SENNOSIDES [Concomitant]
     Active Substance: SENNOSIDES
     Indication: Constipation
     Route: 048
     Dates: start: 2017
  26. GLIMEPIRIDE [Concomitant]
     Active Substance: GLIMEPIRIDE
     Indication: Glycosuria
     Route: 048
     Dates: end: 20170804
  27. NEXIUM [Concomitant]
     Active Substance: ESOMEPRAZOLE MAGNESIUM
     Indication: Gastrooesophageal reflux disease
     Route: 048
     Dates: start: 20170421, end: 20170901
  28. ADCIRCA [Concomitant]
     Active Substance: TADALAFIL
     Indication: Portopulmonary hypertension
     Route: 048
     Dates: start: 20170427, end: 20170719
  29. LANSOPRAZOLE [Concomitant]
     Active Substance: LANSOPRAZOLE
     Indication: Prophylaxis
     Route: 048
     Dates: start: 20171212
  30. OXYGEN [Concomitant]
     Active Substance: OXYGEN
     Route: 055
  31. ELIQUIS [Concomitant]
     Active Substance: APIXABAN
     Indication: Right ventricular failure
     Route: 048
     Dates: start: 201909

REACTIONS (5)
  - Jaundice [Recovered/Resolved]
  - Cholecystectomy [Unknown]
  - Pulmonary arterial pressure increased [Recovering/Resolving]
  - Pericardial effusion [Recovering/Resolving]
  - Therapeutic product effect incomplete [Unknown]

NARRATIVE: CASE EVENT DATE: 20171001
